FAERS Safety Report 13255526 (Version 1)
Quarter: 2017Q1

REPORT INFORMATION
  Report Type: Spontaneous
  Country: NL (occurrence: NL)
  Receive Date: 20170221
  Receipt Date: 20170221
  Transmission Date: 20170428
  Serious: Yes (Death, Other)
  Sender: FDA-Public Use
  Company Number: PHHY2017NL021053

PATIENT
  Age: 64 Year
  Sex: Female

DRUGS (1)
  1. PANOBINOSTAT [Suspect]
     Active Substance: PANOBINOSTAT
     Indication: T-CELL PROLYMPHOCYTIC LEUKAEMIA
     Dosage: UNK (2 CYCLES)
     Route: 065

REACTIONS (7)
  - T-cell prolymphocytic leukaemia [Unknown]
  - Lymphocyte count increased [Recovered/Resolved]
  - Splenomegaly [Recovered/Resolved]
  - Lymphadenopathy [Recovered/Resolved]
  - Death [Fatal]
  - Malignant neoplasm progression [Unknown]
  - Product use issue [Unknown]
